FAERS Safety Report 19283475 (Version 2)
Quarter: 2021Q2

REPORT INFORMATION
  Report Type: Spontaneous
  Country: ES (occurrence: ES)
  Receive Date: 20210521
  Receipt Date: 20210601
  Transmission Date: 20210717
  Serious: Yes (Other)
  Sender: FDA-Public Use
  Company Number: ES-ASTELLAS-2021US017993

PATIENT
  Age: 4 Year
  Sex: Male
  Weight: 16 kg

DRUGS (1)
  1. AMPHOTERICIN B, LIPOSOME [Suspect]
     Active Substance: AMPHOTERICIN B
     Indication: CANDIDA INFECTION
     Route: 042
     Dates: start: 20190518

REACTIONS (7)
  - Myalgia [Unknown]
  - Lung opacity [Unknown]
  - Thrombophlebitis septic [Unknown]
  - Acute phase reaction [Unknown]
  - Brachiocephalic vein thrombosis [Unknown]
  - Candida infection [Unknown]
  - Pyrexia [Unknown]

NARRATIVE: CASE EVENT DATE: 20190518
